FAERS Safety Report 13603684 (Version 3)
Quarter: 2017Q3

REPORT INFORMATION
  Report Type: Spontaneous
  Country: US (occurrence: US)
  Receive Date: 20170601
  Receipt Date: 20170922
  Transmission Date: 20171127
  Serious: No
  Sender: FDA-Public Use
  Company Number: US-BRISTOL-MYERS SQUIBB COMPANY-BMS-2017-048317

PATIENT
  Sex: Female

DRUGS (1)
  1. SPRYCEL [Suspect]
     Active Substance: DASATINIB
     Indication: PRODUCT USED FOR UNKNOWN INDICATION
     Dosage: 1 TAB, QD
     Route: 048

REACTIONS (7)
  - Liver disorder [Unknown]
  - Weight increased [Unknown]
  - Dizziness [Unknown]
  - Lymphocyte count increased [Unknown]
  - Blood pressure abnormal [Unknown]
  - Constipation [Unknown]
  - Fatigue [Unknown]
